FAERS Safety Report 5175205-5 (Version None)
Quarter: 2006Q4

REPORT INFORMATION
  Report Type: 
  Country: None (occurrence: None)
  Receive Date: 20061206
  Receipt Date: 20061122
  Transmission Date: 20070319
  Serious: Yes (Other)
  Sender: FDA-Public Use
  Company Number: BR-GDP-0613621

PATIENT
  Age: 42 Year
  Sex: Female

DRUGS (3)
  1. TRI-LUMA [Suspect]
     Indication: CHLOASMA
     Dosage: 1 APP QD TP
     Route: 061
     Dates: start: 20060818, end: 20060902
  2. SUN BATH PROTECTIVE TANNING LOTION [Concomitant]
  3. METICORTEN [Concomitant]

REACTIONS (1)
  - SKIN DISCOLOURATION [None]
